FAERS Safety Report 6288500-3 (Version None)
Quarter: 2009Q3

REPORT INFORMATION
  Report Type: 
  Country: None (occurrence: None)
  Receive Date: 20090729
  Receipt Date: 20090716
  Transmission Date: 20100115
  Serious: Yes (Death)
  Sender: FDA-Public Use
  Company Number: JP-ABBOTT-09P-087-0587622-00

PATIENT
  Age: 80 Year
  Sex: Male

DRUGS (5)
  1. LEUPLIN SR FOR INJECTION KIT [Suspect]
     Indication: PROSTATE CANCER STAGE IV
     Dates: start: 20080827, end: 20080827
  2. ESTRAMUSTINE PHOSPHATE SODIUM [Concomitant]
     Indication: PROSTATE CANCER STAGE IV
     Route: 048
     Dates: end: 20081020
  3. DECADRON [Concomitant]
     Indication: PROSTATE CANCER STAGE IV
     Route: 048
  4. URIEF [Concomitant]
     Indication: BENIGN PROSTATIC HYPERPLASIA
     Route: 048
     Dates: end: 20081020
  5. MAGMITT [Concomitant]
     Indication: CONSTIPATION
     Route: 048
     Dates: end: 20081020

REACTIONS (1)
  - PROSTATE CANCER STAGE IV [None]
